FAERS Safety Report 4925242-8 (Version None)
Quarter: 2006Q1

REPORT INFORMATION
  Report Type: 
  Country: None (occurrence: None)
  Receive Date: 20060222
  Receipt Date: 20060222
  Transmission Date: 20060701
  Serious: No
  Sender: FDA-Public Use
  Company Number: None

PATIENT
  Age: 39 Year

DRUGS (1)
  1. ZANAFLEX [Suspect]
     Indication: INSOMNIA
     Dosage: 4 DAILY 21 PO
     Route: 048
     Dates: start: 20060124, end: 20060125

REACTIONS (2)
  - FORMICATION [None]
  - HEADACHE [None]
